FAERS Safety Report 10250344 (Version 1)
Quarter: 2014Q2

REPORT INFORMATION
  Report Type: Spontaneous
  Country: US (occurrence: US)
  Receive Date: 20140620
  Receipt Date: 20140620
  Transmission Date: 20141212
  Serious: Yes (Disabling, Other)
  Sender: FDA-Public Use
  Company Number: CHPA2014US008231

PATIENT
  Sex: Male

DRUGS (5)
  1. DESENEX (UNDECYLENIC ACID) [Suspect]
     Indication: PROPHYLAXIS
     Dosage: UNK
     Route: 061
  2. DESENEX (UNDECYLENIC ACID) [Suspect]
     Indication: TINEA CRURIS
  3. DESENEX (UNDECYLENIC ACID) [Suspect]
     Indication: TINEA PEDIS
  4. DESENEX ANTIFUNGAL POWDER [Suspect]
     Indication: OFF LABEL USE
  5. HYDROCODONE [Suspect]

REACTIONS (7)
  - Spinal osteoarthritis [Recovered/Resolved]
  - Haemoptysis [Recovered/Resolved]
  - Disability [Not Recovered/Not Resolved]
  - Genital rash [Recovered/Resolved]
  - Pain [Recovered/Resolved]
  - Tinea cruris [Not Recovered/Not Resolved]
  - Wrong technique in drug usage process [Unknown]
